FAERS Safety Report 16032076 (Version 1)
Quarter: 2019Q1

REPORT INFORMATION
  Report Type: Spontaneous
  Country: US (occurrence: US)
  Receive Date: 20190304
  Receipt Date: 20190304
  Transmission Date: 20190418
  Serious: No
  Sender: FDA-Public Use
  Company Number: PHEH2019US008773

PATIENT
  Sex: Male
  Weight: 93.44 kg

DRUGS (1)
  1. VOTRIENT [Suspect]
     Active Substance: PAZOPANIB HYDROCHLORIDE
     Indication: METASTATIC RENAL CELL CARCINOMA
     Dosage: UNK
     Route: 065
     Dates: start: 201704, end: 201804

REACTIONS (3)
  - Diarrhoea [Unknown]
  - Dysgeusia [Recovered/Resolved]
  - Weight decreased [Recovered/Resolved]
